FAERS Safety Report 20865336 (Version 1)
Quarter: 2022Q2

REPORT INFORMATION
  Report Type: Spontaneous
  Country: JP (occurrence: JP)
  Receive Date: 20220524
  Receipt Date: 20220524
  Transmission Date: 20220721
  Serious: Yes (Other)
  Sender: FDA-Public Use
  Company Number: JP-UCBSA-2022028658

PATIENT
  Age: 54 Year
  Sex: Male

DRUGS (3)
  1. LEVETIRACETAM [Suspect]
     Active Substance: LEVETIRACETAM
     Indication: Focal dyscognitive seizures
     Dosage: UNKNOWN DOSE
  2. LEVETIRACETAM [Suspect]
     Active Substance: LEVETIRACETAM
     Dosage: 3000 MILLIGRAM PER DAY
  3. LACOSAMIDE [Suspect]
     Active Substance: LACOSAMIDE
     Indication: Partial seizures with secondary generalisation
     Dosage: 200 MILLIGRAM PER DAY

REACTIONS (3)
  - Status epilepticus [Unknown]
  - Partial seizures with secondary generalisation [Unknown]
  - Multiple-drug resistance [Unknown]
